FAERS Safety Report 7334513-X (Version None)
Quarter: 2011Q1

REPORT INFORMATION
  Report Type: 
  Country: None (occurrence: None)
  Receive Date: 20110307
  Receipt Date: 20110228
  Transmission Date: 20110831
  Serious: Yes (Other)
  Sender: FDA-Public Use
  Company Number: US-AMGEN-USASP2011008181

PATIENT
  Age: 20 Year
  Sex: Female

DRUGS (9)
  1. NPLATE [Suspect]
     Indication: IDIOPATHIC THROMBOCYTOPENIC PURPURA
     Dosage: 113 A?G, QWK
     Dates: start: 20110207, end: 20110228
  2. FLORINEF [Concomitant]
  3. CORTICOSTEROIDS [Concomitant]
     Indication: IDIOPATHIC THROMBOCYTOPENIC PURPURA
  4. NPLATE [Suspect]
     Dates: start: 20110207
  5. NEXIUM [Concomitant]
  6. TRAZODONE HCL [Concomitant]
  7. DECADRON [Concomitant]
  8. ABILIFY [Concomitant]
  9. WINRHO [Concomitant]
     Indication: IDIOPATHIC THROMBOCYTOPENIC PURPURA

REACTIONS (2)
  - PLATELET COUNT INCREASED [None]
  - DRUG INEFFECTIVE [None]
